FAERS Safety Report 21115154 (Version 6)
Quarter: 2022Q4

REPORT INFORMATION
  Report Type: Spontaneous
  Country: US (occurrence: US)
  Receive Date: 20220721
  Receipt Date: 20221229
  Transmission Date: 20230113
  Serious: No
  Sender: FDA-Public Use
  Company Number: US-PFIZER INC-202200075676

PATIENT
  Age: 76 Year
  Sex: Female

DRUGS (2)
  1. PREMARIN [Suspect]
     Active Substance: ESTROGENS, CONJUGATED
     Indication: Bone loss
     Dosage: 0.3 MG
  2. PREMARIN [Suspect]
     Active Substance: ESTROGENS, CONJUGATED
     Indication: Vulvovaginal discomfort

REACTIONS (5)
  - Vulvovaginal dryness [Unknown]
  - Atrophic vulvovaginitis [Unknown]
  - Cystitis [Unknown]
  - Drug effective for unapproved indication [Unknown]
  - Off label use [Unknown]
